FAERS Safety Report 13517720 (Version 1)
Quarter: 2017Q2

REPORT INFORMATION
  Report Type: Spontaneous
  Country: US (occurrence: US)
  Receive Date: 20170505
  Receipt Date: 20170505
  Transmission Date: 20170830
  Serious: Yes (Other)
  Sender: FDA-Public Use
  Company Number: US-BAYER-2017-083903

PATIENT
  Sex: Female

DRUGS (1)
  1. MIRENA [Suspect]
     Active Substance: LEVONORGESTREL
     Indication: CONTRACEPTION
     Dosage: 20 MCG/24HR, CONT
     Route: 015
     Dates: start: 20150223

REACTIONS (10)
  - Device expulsion [None]
  - Nausea [None]
  - Dyspareunia [None]
  - Amenorrhoea [None]
  - Nervousness [None]
  - Adverse event [None]
  - Genital discharge [None]
  - Vomiting in pregnancy [None]
  - Pregnancy with contraceptive device [None]
  - Feeling abnormal [None]

NARRATIVE: CASE EVENT DATE: 2015
